FAERS Safety Report 10086459 (Version 1)
Quarter: 2014Q2

REPORT INFORMATION
  Report Type: Spontaneous
  Country: US (occurrence: US)
  Receive Date: 20140418
  Receipt Date: 20140418
  Transmission Date: 20141212
  Serious: Yes (Other)
  Sender: FDA-Public Use
  Company Number: US-ABBVIE-14P-163-1225642-00

PATIENT
  Age: 41 Year
  Sex: Female
  Weight: 90.8 kg

DRUGS (1)
  1. LUPRON DEPOT [Suspect]
     Indication: UTERINE LEIOMYOMA
     Dates: start: 20131101, end: 201402

REACTIONS (6)
  - Uterine haemorrhage [Recovered/Resolved]
  - Uterine leiomyoma [Recovered/Resolved]
  - Genital burning sensation [Not Recovered/Not Resolved]
  - Vulvovaginal pain [Not Recovered/Not Resolved]
  - Vaginal mucosal blistering [Not Recovered/Not Resolved]
  - Dysuria [Not Recovered/Not Resolved]
